FAERS Safety Report 5624727-9 (Version None)
Quarter: 2008Q1

REPORT INFORMATION
  Report Type: 
  Country: None (occurrence: None)
  Receive Date: 20080208
  Receipt Date: 20080129
  Transmission Date: 20080703
  Serious: Yes (Other)
  Sender: FDA-Public Use
  Company Number: 44757

PATIENT
  Sex: Male
  Weight: 63.5036 kg

DRUGS (1)
  1. OCTREOTIDE ACETATE [Suspect]
     Indication: CARCINOID TUMOUR
     Dosage: 100MCG - 3 TIMES A DAY - SUBC
     Route: 058
     Dates: start: 20070401

REACTIONS (5)
  - DRUG EFFECT DECREASED [None]
  - DRUG INEFFECTIVE [None]
  - FATIGUE [None]
  - MEDICATION ERROR [None]
  - PHARMACEUTICAL PRODUCT COMPLAINT [None]
